FAERS Safety Report 6298641-2 (Version None)
Quarter: 2009Q3

REPORT INFORMATION
  Report Type: 
  Country: None (occurrence: None)
  Receive Date: 20090804
  Receipt Date: 20090724
  Transmission Date: 20100115
  Serious: Yes (Hospitalization, Other)
  Sender: FDA-Public Use
  Company Number: 84535

PATIENT
  Age: 31 Year
  Sex: Male

DRUGS (1)
  1. FLUPHENAZINE DECANOATE [Suspect]
     Dosage: 50 MG IM
     Route: 030

REACTIONS (5)
  - AKATHISIA [None]
  - BLOOD CREATINE PHOSPHOKINASE INCREASED [None]
  - DRUG ABUSE [None]
  - DYSTONIA [None]
  - WRONG DRUG ADMINISTERED [None]
